FAERS Safety Report 5874711-5 (Version None)
Quarter: 2008Q3

REPORT INFORMATION
  Report Type: 
  Country: None (occurrence: None)
  Receive Date: 20080909
  Receipt Date: 20080828
  Transmission Date: 20090109
  Serious: Yes (Hospitalization)
  Sender: FDA-Public Use
  Company Number: IE-JNJFOC-20080900142

PATIENT
  Age: 5 Decade
  Sex: Female

DRUGS (3)
  1. DAKTARIN ORAL [Suspect]
     Route: 061
  2. DAKTARIN ORAL [Suspect]
     Indication: ORAL CANDIDIASIS
     Route: 061
  3. WARFARIN SODIUM [Interacting]
     Indication: DRUG USE FOR UNKNOWN INDICATION
     Route: 065

REACTIONS (2)
  - ADVERSE EVENT [None]
  - DRUG INTERACTION [None]
